FAERS Safety Report 6047980-9 (Version None)
Quarter: 2009Q1

REPORT INFORMATION
  Report Type: 
  Country: None (occurrence: None)
  Receive Date: 20090123
  Receipt Date: 20090113
  Transmission Date: 20090719
  Serious: Yes (Hospitalization)
  Sender: FDA-Public Use
  Company Number: PHNR2007AU01872

PATIENT
  Sex: Female

DRUGS (8)
  1. CLOZARIL [Suspect]
     Indication: SCHIZOPHRENIA
     Dosage: 12.5 - 300MG DAILY
     Route: 048
     Dates: start: 20020501, end: 20070816
  2. CLOZARIL [Suspect]
     Dosage: 300 MG NOCTE
     Route: 048
  3. GLICLAZIDE [Concomitant]
  4. ASPIRIN TAB [Concomitant]
  5. FRUSEMIDE [Concomitant]
  6. COLOXYL WITH SENNA [Concomitant]
  7. NITROGLYCERIN [Concomitant]
     Route: 061
  8. METFORMIN [Concomitant]
     Dates: end: 20070816

REACTIONS (36)
  - ACUTE PULMONARY OEDEMA [None]
  - ANION GAP INCREASED [None]
  - AORTIC STENOSIS [None]
  - AORTIC VALVE DISEASE [None]
  - AORTIC VALVE REPLACEMENT [None]
  - ARTERIOGRAM CORONARY ABNORMAL [None]
  - BLOOD CHLORIDE DECREASED [None]
  - BLOOD MAGNESIUM DECREASED [None]
  - BLOOD POTASSIUM DECREASED [None]
  - BLOOD PRESSURE INCREASED [None]
  - BLOOD SODIUM INCREASED [None]
  - BLOOD UREA INCREASED [None]
  - CHEST X-RAY ABNORMAL [None]
  - COLONOSCOPY [None]
  - CORONARY ARTERY BYPASS [None]
  - CORONARY ARTERY STENOSIS [None]
  - DYSPNOEA [None]
  - ECHOCARDIOGRAM ABNORMAL [None]
  - EJECTION FRACTION DECREASED [None]
  - ENDOSCOPY UPPER GASTROINTESTINAL TRACT [None]
  - FATIGUE [None]
  - HAEMATOCRIT DECREASED [None]
  - HAEMOGLOBIN DECREASED [None]
  - HYPOXIA [None]
  - IRON DEFICIENCY ANAEMIA [None]
  - LEFT VENTRICULAR DYSFUNCTION [None]
  - LOWER RESPIRATORY TRACT INFECTION [None]
  - LYMPHOCYTE COUNT DECREASED [None]
  - MEAN CELL HAEMOGLOBIN DECREASED [None]
  - MEAN CELL VOLUME DECREASED [None]
  - MENTAL DISORDER [None]
  - MITRAL VALVE CALCIFICATION [None]
  - PLEURITIC PAIN [None]
  - PYREXIA [None]
  - RED BLOOD CELL COUNT DECREASED [None]
  - TROPONIN I INCREASED [None]
